FAERS Safety Report 9539931 (Version 1)
Quarter: 2013Q2

REPORT INFORMATION
  Report Type: Spontaneous
  Country: US (occurrence: None)
  Receive Date: 20130521
  Receipt Date: 20130521
  Transmission Date: 20140414
  Serious: No
  Sender: FDA-Public Use
  Company Number: 1000042774

PATIENT
  Age: 79 Year
  Sex: Female

DRUGS (3)
  1. TUDORZA PRESSAIR [Suspect]
     Indication: CHRONIC OBSTRUCTIVE PULMONARY DISEASE
     Dosage: 800 UG (400 UG,2 IN 1 D),RESPIRATORY
     Route: 055
     Dates: start: 20130215
  2. PULMICORT (BUDESONIDE) (BUDESONIDE) [Concomitant]
  3. XOPENEX (LEVOSALBUTAMOL HYDROCHLORIDE) (LEVOSALBUTAMOL HYDROCHLORIDE) [Concomitant]

REACTIONS (2)
  - Rhinorrhoea [None]
  - Nasal congestion [None]
